FAERS Safety Report 9552088 (Version 4)
Quarter: 2014Q1

REPORT INFORMATION
  Report Type: Spontaneous
  Country: FI (occurrence: FI)
  Receive Date: 20130925
  Receipt Date: 20140227
  Transmission Date: 20141002
  Serious: Yes (Hospitalization, Disabling, Other)
  Sender: FDA-Public Use
  Company Number: PHHY2013FI062194

PATIENT
  Age: 75 Year
  Sex: Male

DRUGS (12)
  1. TASIGNA [Suspect]
     Indication: CHRONIC MYELOID LEUKAEMIA
     Dosage: 400 MG, QD (2X200 MG)
     Dates: start: 20110921, end: 20130225
  2. TASIGNA [Suspect]
     Dosage: 200 MG, BID
     Route: 048
     Dates: start: 20130303, end: 20130515
  3. ANTEPSIN [Concomitant]
  4. KALCIPOS-D [Concomitant]
     Dosage: 1 DF, BID
     Route: 048
  5. KALEORID [Concomitant]
     Dosage: 1 DF, BID
     Route: 048
  6. FURESIS [Concomitant]
     Dosage: 40 MG, BID
  7. MAREVAN [Concomitant]
  8. RENITEC [Concomitant]
     Dosage: 20 MG, PER DAY
  9. VIAGRA [Concomitant]
  10. PANACOD [Concomitant]
  11. IMOVANE [Concomitant]
  12. PREDNISOLON [Concomitant]
     Dosage: 5 G, BID

REACTIONS (4)
  - Impaired healing [Not Recovered/Not Resolved]
  - Platelet count decreased [Unknown]
  - Wound infection [Unknown]
  - Haemoglobin decreased [Unknown]
